FAERS Safety Report 9369830 (Version 4)
Quarter: 2013Q4

REPORT INFORMATION
  Report Type: Report from Study
  Country: US (occurrence: US)
  Receive Date: 20130626
  Receipt Date: 20131129
  Transmission Date: 20140711
  Serious: Yes (Death, Other)
  Sender: FDA-Public Use
  Company Number: US-SANOFI-AVENTIS-2013SA061555

PATIENT
  Age: 42 Year
  Sex: Female
  Weight: 65.7 kg

DRUGS (10)
  1. AFLIBERCEPT [Suspect]
     Indication: CHOLANGIOCARCINOMA
     Route: 042
     Dates: start: 20130516, end: 20130516
  2. AFLIBERCEPT [Suspect]
     Indication: CHOLANGIOCARCINOMA
     Route: 042
     Dates: start: 20130516, end: 20130516
  3. AFLIBERCEPT [Suspect]
     Indication: CHOLANGIOCARCINOMA
     Route: 042
     Dates: start: 20130130, end: 20130130
  4. SAR307746 [Suspect]
     Indication: CHOLANGIOCARCINOMA
     Route: 042
     Dates: start: 20130130, end: 20130130
  5. SAR307746 [Suspect]
     Indication: CHOLANGIOCARCINOMA
     Route: 042
     Dates: start: 20130516, end: 20130516
  6. CLEOCIN T [Concomitant]
     Indication: RASH
     Route: 061
     Dates: start: 20130313
  7. COLACE [Concomitant]
     Indication: CONSTIPATION
     Route: 048
     Dates: start: 201209
  8. DOXYCYCLINE [Concomitant]
     Indication: ROSACEA
     Route: 048
  9. LORAZEPAM [Concomitant]
     Indication: ANXIETY
     Route: 048
     Dates: start: 20120706
  10. NEXIUM [Concomitant]
     Indication: GASTROOESOPHAGEAL REFLUX DISEASE
     Route: 048
     Dates: start: 20130112

REACTIONS (2)
  - Nuclear magnetic resonance imaging abnormal [Not Recovered/Not Resolved]
  - Disease progression [Fatal]
